FAERS Safety Report 5806453-6 (Version None)
Quarter: 2008Q3

REPORT INFORMATION
  Report Type: 
  Country: None (occurrence: None)
  Receive Date: 20080710
  Receipt Date: 20080701
  Transmission Date: 20090109
  Serious: Yes (Hospitalization, Other)
  Sender: FDA-Public Use
  Company Number: BE-PFIZER INC-2008055067

PATIENT
  Sex: Female

DRUGS (5)
  1. SUTENT [Suspect]
     Indication: METASTATIC RENAL CELL CARCINOMA
     Route: 048
     Dates: start: 20080609, end: 20080616
  2. OMEPRAZOLE [Concomitant]
  3. MOXON [Concomitant]
  4. ADALAT [Concomitant]
  5. DEPAKENE [Concomitant]

REACTIONS (2)
  - ANAL HAEMORRHAGE [None]
  - COLITIS [None]
